FAERS Safety Report 9231172 (Version 3)
Quarter: 2013Q3

REPORT INFORMATION
  Report Type: Report from Study
  Country: US (occurrence: US)
  Receive Date: 20130415
  Receipt Date: 20130701
  Transmission Date: 20140515
  Serious: Yes (Hospitalization, Other)
  Sender: FDA-Public Use
  Company Number: US-BAYER-2013-045557

PATIENT
  Age: 60 Year
  Sex: Female
  Weight: 61.1 kg

DRUGS (13)
  1. STIVARGA [Suspect]
     Indication: COLON CANCER
     Dosage: DAILY DOSE 80 MG
     Route: 048
     Dates: start: 20130309
  2. STIVARGA [Suspect]
     Indication: COLON CANCER
     Dosage: 160 MG, QD
     Route: 048
  3. FOLFOX-4 [Concomitant]
     Indication: COLON CANCER
     Dosage: UNK
     Dates: start: 201301
  4. BEVACIZUMAB [Concomitant]
     Indication: COLON CANCER
     Dosage: UNK
     Dates: start: 201301
  5. FISH OIL [Concomitant]
     Dosage: 1 CAPSULE DAILY
     Route: 048
  6. MINOCYCLINE [Concomitant]
     Dosage: 50 G, BID (2 CAPSULES)
     Route: 048
  7. MIRALAX [Concomitant]
     Route: 048
  8. MULTIVITAMINS [Concomitant]
     Dosage: DAILY
     Route: 048
  9. SLIPPERY ELM [Concomitant]
     Route: 048
  10. TRAMADOL [Concomitant]
  11. TURMERIC [Concomitant]
     Route: 048
  12. VITAMIN B6 [Concomitant]
     Route: 048
  13. VITAMIN D3 [Concomitant]
     Route: 048

REACTIONS (18)
  - Dehydration [None]
  - Colon cancer [None]
  - Blood pressure increased [None]
  - Pain [None]
  - Intestinal obstruction [None]
  - Aphagia [None]
  - Asthenia [None]
  - Decreased appetite [None]
  - Weight decreased [None]
  - Dyspepsia [None]
  - Insomnia [None]
  - Back pain [None]
  - Vomiting [None]
  - Malaise [None]
  - Early satiety [None]
  - Nausea [None]
  - Constipation [None]
  - Malaise [None]
